FAERS Safety Report 23547113 (Version 1)
Quarter: 2024Q1

REPORT INFORMATION
  Report Type: Spontaneous
  Country: US (occurrence: US)
  Receive Date: 20240221
  Receipt Date: 20240221
  Transmission Date: 20240410
  Serious: No
  Sender: FDA-Public Use
  Company Number: US-BAUSCH-BL-2024-002537

PATIENT
  Age: 48 Year
  Sex: Male

DRUGS (2)
  1. XIFAXAN [Suspect]
     Active Substance: RIFAXIMIN
     Indication: Gastrointestinal bacterial overgrowth
     Route: 048
     Dates: start: 202401, end: 2024
  2. XIFAXAN [Suspect]
     Active Substance: RIFAXIMIN
     Indication: Product use in unapproved indication
     Dosage: DOSE DECREASED
     Route: 048
     Dates: start: 2024, end: 2024

REACTIONS (4)
  - Drug intolerance [Unknown]
  - Skin burning sensation [Recovered/Resolved]
  - Chest pain [Unknown]
  - Product use in unapproved indication [Unknown]

NARRATIVE: CASE EVENT DATE: 20240101
